FAERS Safety Report 5972754-4 (Version None)
Quarter: 2008Q4

REPORT INFORMATION
  Report Type: 
  Country: None (occurrence: None)
  Receive Date: 20081126
  Receipt Date: 20081126
  Transmission Date: 20090506
  Serious: No
  Sender: FDA-Public Use
  Company Number: None

PATIENT
  Age: 44 Year
  Sex: Female
  Weight: 54.4316 kg

DRUGS (1)
  1. LARIAM [Suspect]

REACTIONS (3)
  - CLAUSTROPHOBIA [None]
  - FEELING ABNORMAL [None]
  - PANIC ATTACK [None]
